FAERS Safety Report 9338583 (Version 4)
Quarter: 2013Q3

REPORT INFORMATION
  Report Type: Spontaneous
  Country: JP (occurrence: JP)
  Receive Date: 20130610
  Receipt Date: 20130704
  Transmission Date: 20140515
  Serious: Yes (Other)
  Sender: FDA-Public Use
  Company Number: JP-MERCK-1306JPN002390

PATIENT
  Sex: 0

DRUGS (5)
  1. PEPCID [Suspect]
     Dosage: UNK
     Route: 048
  2. ALENDRONATE SODIUM [Suspect]
     Dosage: UNK
     Route: 048
  3. ACTEMRA [Suspect]
     Dosage: UNK
     Route: 065
  4. DEXAMETHASONE [Suspect]
     Dosage: UNK
     Route: 048
  5. ACYCLOVIR [Suspect]
     Dosage: UNK
     Route: 065

REACTIONS (2)
  - Drug-induced liver injury [Recovered/Resolved]
  - Off label use [Unknown]
